FAERS Safety Report 13159013 (Version 1)
Quarter: 2017Q1

REPORT INFORMATION
  Report Type: Report from Study
  Country: US (occurrence: US)
  Receive Date: 20170127
  Receipt Date: 20170127
  Transmission Date: 20170428
  Serious: Yes (Death, Other)
  Sender: FDA-Public Use
  Company Number: US-009507513-1611USA013066

PATIENT
  Age: 64 Year
  Sex: Female

DRUGS (4)
  1. KEYTRUDA [Suspect]
     Active Substance: PEMBROLIZUMAB
     Indication: METASTATIC NEOPLASM
     Dosage: 125 MG, EVERY 3 WEEKS
     Route: 042
     Dates: start: 20151229, end: 20151229
  2. KEYTRUDA [Suspect]
     Active Substance: PEMBROLIZUMAB
     Indication: COLORECTAL CANCER
     Dosage: 125 MG, EVERY 3 WEEKS
     Route: 042
     Dates: start: 20151208, end: 20151208
  3. REGORAFENIB [Suspect]
     Active Substance: REGORAFENIB
     Dosage: UNK
     Dates: end: 20151211
  4. REGORAFENIB [Suspect]
     Active Substance: REGORAFENIB
     Dosage: UNK
     Dates: start: 201603, end: 20160311

REACTIONS (5)
  - Palmar-plantar erythrodysaesthesia syndrome [Recovering/Resolving]
  - Off label use [Unknown]
  - Diarrhoea [Unknown]
  - Pain [Unknown]
  - Malignant neoplasm progression [Fatal]

NARRATIVE: CASE EVENT DATE: 20151208
